FAERS Safety Report 4363771-9 (Version None)
Quarter: 2004Q2

REPORT INFORMATION
  Report Type: 
  Country: None (occurrence: None)
  Receive Date: 20040521
  Receipt Date: 20040511
  Transmission Date: 20050107
  Serious: Yes (Other)
  Sender: FDA-Public Use
  Company Number: 2004213123SE

PATIENT
  Age: 80 Year
  Sex: Male

DRUGS (1)
  1. GENOTROPIN [Suspect]
     Indication: HYPOPITUITARISM
     Dosage: 0.3 MG, QD,
     Dates: start: 19980108, end: 20040325

REACTIONS (2)
  - NEOPLASM RECURRENCE [None]
  - PITUITARY TUMOUR BENIGN [None]
